FAERS Safety Report 23175921 (Version 1)
Quarter: 2023Q4

REPORT INFORMATION
  Report Type: Spontaneous
  Country: US (occurrence: US)
  Receive Date: 20231113
  Receipt Date: 20231113
  Transmission Date: 20240110
  Serious: No
  Sender: FDA-Public Use
  Company Number: US-ABBVIE-5481985

PATIENT
  Age: 51 Year
  Sex: Female

DRUGS (1)
  1. MAVYRET [Suspect]
     Active Substance: GLECAPREVIR\PIBRENTASVIR
     Indication: Hepatitis C
     Dosage: UNIT DOSE- 300 MG GLECAPREVIR 120 MG PIBRENTASVIR, ?3 TABLETS OF 100/40MG FORM STRENGTH TAKEN AT ...
     Route: 048
     Dates: start: 20231009, end: 20231012

REACTIONS (1)
  - Rash [Recovered/Resolved]

NARRATIVE: CASE EVENT DATE: 20231011
